FAERS Safety Report 4922770-6 (Version None)
Quarter: 2006Q1

REPORT INFORMATION
  Report Type: 
  Country: None (occurrence: None)
  Receive Date: 20060221
  Receipt Date: 20060209
  Transmission Date: 20060701
  Serious: Yes (Life-Threatening)
  Sender: FDA-Public Use
  Company Number: 222117

PATIENT
  Age: 70 Year
  Sex: Male
  Weight: 82 kg

DRUGS (13)
  1. MABTHERA(RITUXIMAB) CONC FOR SOLUTION FOR INFUSION [Suspect]
     Indication: NON-HODGKIN'S LYMPHOMA
     Dosage: 700 MG, INTRAVENOUS
     Route: 042
     Dates: start: 20020601, end: 20020816
  2. ONCOVIN [Suspect]
     Indication: NON-HODGKIN'S LYMPHOMA
     Dosage: 2 MG, INTRAVENOUS
     Route: 042
     Dates: start: 20020601, end: 20020926
  3. CYCLOPHOSPHAMIDE [Suspect]
     Indication: NON-HODGKIN'S LYMPHOMA
     Dosage: 1400 MG, INTRAVENOUS
     Route: 042
     Dates: start: 20020601, end: 20021025
  4. PREDNISONE [Suspect]
     Indication: NON-HODGKIN'S LYMPHOMA
     Dosage: 80 MG, ORAL
     Route: 048
     Dates: start: 20020601, end: 20051029
  5. DOXORUBICIN HCL [Suspect]
  6. EPREX [Concomitant]
  7. BACTRIM [Concomitant]
  8. ZELITREX (VALACICLOVIR) [Concomitant]
  9. ZOVIRAX [Concomitant]
  10. ZOMETA [Concomitant]
  11. LEUCOVORIN CALCIUM [Concomitant]
  12. FLUOROURACIL [Concomitant]
  13. OXALIPLATIN [Concomitant]

REACTIONS (2)
  - COLON CANCER METASTATIC [None]
  - RECTAL HAEMORRHAGE [None]
